FAERS Safety Report 9306468 (Version 1)
Quarter: 2013Q2

REPORT INFORMATION
  Report Type: Spontaneous
  Country: NG (occurrence: NG)
  Receive Date: 20130523
  Receipt Date: 20130523
  Transmission Date: 20140414
  Serious: Yes (Hospitalization)
  Sender: FDA-Public Use
  Company Number: NG-ASTRAZENECA-2013SE35054

PATIENT
  Age: 46 Year
  Sex: Male

DRUGS (2)
  1. MERONEM [Suspect]
     Route: 042
  2. PHENYTOIN [Concomitant]

REACTIONS (1)
  - Partial seizures [Recovered/Resolved]
